FAERS Safety Report 6200685-3 (Version None)
Quarter: 2009Q2

REPORT INFORMATION
  Report Type: 
  Country: None (occurrence: None)
  Receive Date: 20090522
  Receipt Date: 20090513
  Transmission Date: 20091009
  Serious: Yes (Hospitalization, Disabling)
  Sender: FDA-Public Use
  Company Number: US-MERCK-0902USA00149

PATIENT
  Sex: Female

DRUGS (4)
  1. FOSAMAX [Suspect]
     Indication: OSTEOPOROSIS
     Route: 048
     Dates: start: 20000101, end: 20071201
  2. IMIPRAMINE HYDROCHLORIDE [Concomitant]
     Indication: DEPRESSION
     Route: 065
     Dates: start: 19910101
  3. IMIPRAMINE HYDROCHLORIDE [Concomitant]
     Indication: ANXIETY
     Route: 065
     Dates: start: 19910101
  4. FOSAMAX PLUS D [Suspect]
     Indication: OSTEOPOROSIS
     Route: 048
     Dates: start: 20071201, end: 20080529

REACTIONS (5)
  - ANXIETY [None]
  - DEPRESSION [None]
  - GASTROOESOPHAGEAL REFLUX DISEASE [None]
  - OSTEONECROSIS [None]
  - PALPITATIONS [None]
